FAERS Safety Report 6257347-6 (Version None)
Quarter: 2009Q3

REPORT INFORMATION
  Report Type: 
  Country: None (occurrence: None)
  Receive Date: 20090706
  Receipt Date: 20090625
  Transmission Date: 20100115
  Serious: Yes (Other)
  Sender: FDA-Public Use
  Company Number: PHHY2009ES25804

PATIENT
  Age: 66 Year
  Sex: Male

DRUGS (4)
  1. AMANTADINE HCL [Suspect]
     Indication: PARKINSON'S DISEASE
     Dosage: 100 MG, BID
  2. ENTACAPONE [Suspect]
     Indication: PARKINSON'S DISEASE
     Dosage: 200 MG, TID
  3. CARBIDOPA AND LEVODOPA [Concomitant]
     Dosage: 25/250 MG TID
  4. CABERGOLINE [Concomitant]
     Dosage: 2 MG, BID

REACTIONS (8)
  - ASTHENIA [None]
  - BLOOD SODIUM DECREASED [None]
  - DECREASED APPETITE [None]
  - INAPPROPRIATE ANTIDIURETIC HORMONE SECRETION [None]
  - LETHARGY [None]
  - MUSCULAR WEAKNESS [None]
  - URINE SODIUM [None]
  - WEIGHT DECREASED [None]
